FAERS Safety Report 4646341-4 (Version None)
Quarter: 2005Q2

REPORT INFORMATION
  Report Type: 
  Country: None (occurrence: None)
  Receive Date: 20050427
  Receipt Date: 20050420
  Transmission Date: 20051028
  Serious: Yes (Hospitalization)
  Sender: FDA-Public Use
  Company Number: PHRM2005FR01340

PATIENT
  Age: 33 Year
  Sex: Female

DRUGS (1)
  1. GLEEVEC [Suspect]
     Indication: ACUTE LYMPHOCYTIC LEUKAEMIA
     Dosage: 600 MG DAILY
     Route: 048
     Dates: end: 20050301

REACTIONS (8)
  - GENERALISED OEDEMA [None]
  - GLOMERULONEPHRITIS MEMBRANOUS [None]
  - GRAFT VERSUS HOST DISEASE [None]
  - NEPHROTIC SYNDROME [None]
  - PROTEINURIA [None]
  - PRURITUS [None]
  - RASH [None]
  - WEIGHT INCREASED [None]
